FAERS Safety Report 22031250 (Version 1)
Quarter: 2023Q1

REPORT INFORMATION
  Report Type: Spontaneous
  Country: CN (occurrence: CN)
  Receive Date: 20230223
  Receipt Date: 20230223
  Transmission Date: 20230418
  Serious: Yes (Hospitalization, Other)
  Sender: FDA-Public Use
  Company Number: None

PATIENT
  Age: 17 Year
  Sex: Male
  Weight: 53 kg

DRUGS (12)
  1. CYCLOPHOSPHAMIDE [Suspect]
     Active Substance: CYCLOPHOSPHAMIDE
     Indication: T-cell type acute leukaemia
     Dosage: 0.5 G, ONCE EVERY 12 HOURS, DILUTED WITH 500 ML OF SODIUM CHLORIDE
     Route: 041
     Dates: start: 20230119, end: 20230121
  2. CYCLOPHOSPHAMIDE [Suspect]
     Active Substance: CYCLOPHOSPHAMIDE
     Indication: Gene mutation identification test positive
  3. CYCLOPHOSPHAMIDE [Suspect]
     Active Substance: CYCLOPHOSPHAMIDE
     Indication: Disease recurrence
  4. DEXTROSE [Suspect]
     Active Substance: DEXTROSE
     Indication: Medication dilution
     Dosage: 5%, 250 ML, ONCE, USED TO DILUTE 85 MG OF PIRARUBICIN HYDROCHLORIDE
     Route: 041
     Dates: start: 20230122, end: 20230122
  5. SODIUM CHLORIDE [Suspect]
     Active Substance: SODIUM CHLORIDE
     Indication: Medication dilution
     Dosage: 500 ML, ONCE EVERY 12 HOURS, USED TO DILUTE 0.5 G OF CYCLOPHOSPHAMIDE
     Route: 041
     Dates: start: 20230119, end: 20230121
  6. SODIUM CHLORIDE [Suspect]
     Active Substance: SODIUM CHLORIDE
     Dosage: 100 ML, ONCE, USED TO DILUTE 2 MG OF VINCRISTINE SULFATE
     Route: 041
     Dates: start: 20230122, end: 20230122
  7. PIRARUBICIN HYDROCHLORIDE [Suspect]
     Active Substance: PIRARUBICIN HYDROCHLORIDE
     Indication: T-cell type acute leukaemia
     Dosage: 85 MG, ONCE, DILUTED WITH 250 ML OF GLUCOSE INJECTION, DOSAGE FORM: POWDER)
     Route: 041
     Dates: start: 20230122, end: 20230122
  8. PIRARUBICIN HYDROCHLORIDE [Suspect]
     Active Substance: PIRARUBICIN HYDROCHLORIDE
     Indication: Gene mutation identification test positive
  9. PIRARUBICIN HYDROCHLORIDE [Suspect]
     Active Substance: PIRARUBICIN HYDROCHLORIDE
     Indication: Disease recurrence
  10. VINCRISTINE SULFATE [Suspect]
     Active Substance: VINCRISTINE SULFATE
     Indication: T-cell type acute leukaemia
     Dosage: 2 MG, ONCE, DILUTED WITH 100 ML OF SODIUM CHLORIDE INJECTION
     Route: 041
     Dates: start: 20230122, end: 20230122
  11. VINCRISTINE SULFATE [Suspect]
     Active Substance: VINCRISTINE SULFATE
     Indication: Gene mutation identification test positive
  12. VINCRISTINE SULFATE [Suspect]
     Active Substance: VINCRISTINE SULFATE
     Indication: Disease recurrence

REACTIONS (1)
  - Myelosuppression [Unknown]

NARRATIVE: CASE EVENT DATE: 20230123
